FAERS Safety Report 4895809-4 (Version None)
Quarter: 2006Q1

REPORT INFORMATION
  Report Type: 
  Country: None (occurrence: None)
  Receive Date: 20060125
  Receipt Date: 20060116
  Transmission Date: 20060701
  Serious: Yes (Life-Threatening)
  Sender: FDA-Public Use
  Company Number: HQWYE368316JAN06

PATIENT
  Age: 82 Year
  Sex: Male

DRUGS (5)
  1. CORDARONE [Suspect]
     Indication: ATRIAL FIBRILLATION
     Dosage: 200 MG 3X PER 1 WK ORAL
     Route: 048
     Dates: start: 20040222
  2. CORDARONE [Suspect]
     Indication: ATRIAL FLUTTER
     Dosage: 200 MG 3X PER 1 WK ORAL
     Route: 048
     Dates: start: 20040222
  3. ENALAPRIL MALEATE [Concomitant]
  4. SINTROM [Concomitant]
  5. TOLVON (MIANSERIN HYDROCHLORIDE) [Concomitant]

REACTIONS (6)
  - AGITATION [None]
  - BRONCHOSPASM [None]
  - CYANOSIS [None]
  - DISEASE RECURRENCE [None]
  - EOSINOPHILIA [None]
  - OBSTRUCTIVE AIRWAYS DISORDER [None]
